FAERS Safety Report 7281479-7 (Version None)
Quarter: 2011Q1

REPORT INFORMATION
  Report Type: 
  Country: None (occurrence: None)
  Receive Date: 20110208
  Receipt Date: 20110127
  Transmission Date: 20110831
  Serious: Yes (Hospitalization)
  Sender: FDA-Public Use
  Company Number: PHHY2011FR06961

PATIENT
  Sex: Female

DRUGS (1)
  1. AFINITOR [Suspect]
     Indication: RENAL CANCER METASTATIC
     Dosage: 1 TABLET
     Route: 048
     Dates: start: 20100901, end: 20110101

REACTIONS (3)
  - OEDEMA PERIPHERAL [None]
  - ECZEMA [None]
  - SKIN ULCER [None]
